FAERS Safety Report 9281886 (Version 1)
Quarter: 2013Q2

REPORT INFORMATION
  Report Type: Report from Study
  Country: IN (occurrence: IN)
  Receive Date: 20130510
  Receipt Date: 20130510
  Transmission Date: 20140414
  Serious: Yes (Hospitalization)
  Sender: FDA-Public Use
  Company Number: IN-ROCHE-1222307

PATIENT
  Sex: 0
  Weight: 90.07 kg

DRUGS (17)
  1. XOLAIR [Suspect]
     Indication: PRODUCT USED FOR UNKNOWN INDICATION
     Route: 065
     Dates: start: 20110102
  2. XOLAIR [Suspect]
     Route: 065
     Dates: start: 20110204
  3. XOLAIR [Suspect]
     Route: 065
     Dates: start: 20111106
  4. XOLAIR [Suspect]
     Route: 065
     Dates: start: 20111210
  5. XOLAIR [Suspect]
     Route: 065
  6. XOLAIR [Suspect]
     Route: 065
     Dates: start: 20120214
  7. XOLAIR [Suspect]
     Route: 065
     Dates: start: 20120316
  8. XOLAIR [Suspect]
     Route: 065
  9. FORMOTEROL [Concomitant]
  10. FLUTICASONE [Concomitant]
  11. SALBUTAMOL [Concomitant]
  12. DERIPHYLLIN [Concomitant]
  13. IPRATROPIUM BROMIDE [Concomitant]
  14. BUDESONIDE [Concomitant]
  15. DOXOFYLLINE [Concomitant]
  16. LEVOCETIRIZINE [Concomitant]
  17. TIOTROPIUM BROMIDE [Concomitant]

REACTIONS (5)
  - Chest pain [Recovering/Resolving]
  - Diarrhoea [Recovering/Resolving]
  - Asthma [Unknown]
  - Forced expiratory volume decreased [Unknown]
  - Blood pressure systolic increased [Unknown]
